FAERS Safety Report 11813534 (Version 1)
Quarter: 2015Q4

REPORT INFORMATION
  Report Type: Spontaneous
  Country: US (occurrence: None)
  Receive Date: 20151208
  Receipt Date: 20151208
  Transmission Date: 20160305
  Serious: Yes (Other)
  Sender: FDA-Public Use
  Company Number: None

PATIENT
  Age: 75 Year
  Sex: Female

DRUGS (1)
  1. ATORVASTATIN 80MG MYLAN [Suspect]
     Active Substance: ATORVASTATIN
     Indication: BLOOD CHOLESTEROL INCREASED
     Dosage: 3 PILLS QD ORAL
     Route: 048

REACTIONS (4)
  - Abdominal discomfort [None]
  - Pruritus [None]
  - Paraesthesia [None]
  - Feeling abnormal [None]

NARRATIVE: CASE EVENT DATE: 20151203
